FAERS Safety Report 18400759 (Version 1)
Quarter: 2020Q4

REPORT INFORMATION
  Report Type: Spontaneous
  Country: DE (occurrence: DE)
  Receive Date: 20201019
  Receipt Date: 20201019
  Transmission Date: 20210114
  Serious: Yes (Death)
  Sender: FDA-Public Use
  Company Number: DE-ROCHE-2696114

PATIENT
  Age: 80 Year
  Sex: Female
  Weight: 65 kg

DRUGS (1)
  1. TECENTRIQ [Suspect]
     Active Substance: ATEZOLIZUMAB
     Indication: LUNG ADENOCARCINOMA
     Route: 042
     Dates: start: 201907

REACTIONS (2)
  - Paraplegia [Fatal]
  - Myelitis transverse [Fatal]

NARRATIVE: CASE EVENT DATE: 201907
